FAERS Safety Report 5513185-0 (Version None)
Quarter: 2007Q4

REPORT INFORMATION
  Report Type: 
  Country: None (occurrence: None)
  Receive Date: 20071112
  Receipt Date: 20070830
  Transmission Date: 20080405
  Serious: No
  Sender: FDA-Public Use
  Company Number: US-BRISTOL-MYERS SQUIBB COMPANY-13893995

PATIENT
  Age: 66 Year
  Sex: Female
  Weight: 70 kg

DRUGS (5)
  1. SUSTIVA [Suspect]
     Indication: HIV INFECTION
     Dates: start: 20060101
  2. INSPRA [Concomitant]
  3. LOTREL [Concomitant]
  4. PRECOSE [Concomitant]
  5. WELCHOL [Concomitant]

REACTIONS (1)
  - MEDICATION RESIDUE [None]
